FAERS Safety Report 6160077-2 (Version None)
Quarter: 2009Q2

REPORT INFORMATION
  Report Type: 
  Country: None (occurrence: None)
  Receive Date: 20090415
  Receipt Date: 20090403
  Transmission Date: 20091009
  Serious: Yes (Life-Threatening, Other)
  Sender: FDA-Public Use
  Company Number: ACO_00535_2009

PATIENT
  Sex: Female

DRUGS (12)
  1. SIRDALUD /00740702/ (SIRDALUD - TIZANIDINE HYDROCHLORIDE) 2 MG (NOT SP [Suspect]
     Indication: MUSCLE SPASTICITY
     Dosage: (3 MG TID ORAL)
     Route: 048
     Dates: start: 20090201, end: 20090301
  2. LIORESAL [Suspect]
     Indication: MUSCLE SPASTICITY
     Dosage: (25 MG TID ORAL)
     Route: 048
  3. OXYBUTYNIN CHLORIDE [Concomitant]
  4. ACIMETHIN [Concomitant]
  5. CIPRALEX /01588501/ [Concomitant]
  6. TARGIN [Concomitant]
  7. AGGRENOX [Concomitant]
  8. AMILORETIK [Concomitant]
  9. AMLODIPINE [Concomitant]
  10. ANAFRANIL [Concomitant]
  11. LAXOBERAL [Concomitant]
  12. MOVICOL /01053601/ [Concomitant]

REACTIONS (6)
  - ASTHENIA [None]
  - BLOOD PRESSURE FLUCTUATION [None]
  - COMA [None]
  - DRUG EFFECT DECREASED [None]
  - MALAISE [None]
  - PALLOR [None]
